FAERS Safety Report 19577854 (Version 1)
Quarter: 2021Q3

REPORT INFORMATION
  Report Type: Report from Study
  Country: IN (occurrence: IN)
  Receive Date: 20210719
  Receipt Date: 20210719
  Transmission Date: 20211014
  Serious: Yes (Hospitalization, Other)
  Sender: FDA-Public Use
  Company Number: PHHY2018IN031519

PATIENT
  Age: 34 Year
  Sex: Male

DRUGS (3)
  1. TASIGNA [Suspect]
     Active Substance: NILOTINIB
     Indication: CHRONIC MYELOID LEUKAEMIA
     Dosage: 400 MG, BID
     Route: 048
     Dates: start: 20180608
  2. TASIGNA [Suspect]
     Active Substance: NILOTINIB
     Dosage: 400 MG, BID
     Route: 065
     Dates: start: 20180508, end: 20210630
  3. TASIGNA [Suspect]
     Active Substance: NILOTINIB
     Dosage: 300 MG, BID
     Route: 065
     Dates: start: 20210702

REACTIONS (3)
  - Haematological malignancy [Recovering/Resolving]
  - Thrombocytopenia [Not Recovered/Not Resolved]
  - Second primary malignancy [Recovering/Resolving]

NARRATIVE: CASE EVENT DATE: 20180618
